FAERS Safety Report 25284335 (Version 3)
Quarter: 2025Q2

REPORT INFORMATION
  Report Type: Spontaneous
  Country: CA (occurrence: CA)
  Receive Date: 20250508
  Receipt Date: 20250602
  Transmission Date: 20250716
  Serious: Yes (Congenital Anomaly)
  Sender: BAYER HEALTHCARE LLC
  Company Number: CA-BAYER-2025A057757

PATIENT

DRUGS (41)
  1. ALEVE [Suspect]
     Active Substance: NAPROXEN SODIUM
     Indication: Foetal exposure during pregnancy
  2. CALCIUM ASCORBATE [Suspect]
     Active Substance: CALCIUM ASCORBATE
     Indication: Foetal exposure during pregnancy
     Route: 065
  3. CALCIUM GLUBIONATE [Suspect]
     Active Substance: CALCIUM GLUBIONATE
     Indication: Foetal exposure during pregnancy
     Route: 065
  4. CANDESARTAN [Suspect]
     Active Substance: CANDESARTAN
     Indication: Foetal exposure during pregnancy
     Route: 065
  5. CELEBREX [Suspect]
     Active Substance: CELECOXIB
     Indication: Foetal exposure during pregnancy
     Route: 065
  6. CETIRIZINE [Suspect]
     Active Substance: CETIRIZINE HYDROCHLORIDE
     Indication: Foetal exposure during pregnancy
     Route: 065
  7. CHLORHEXIDINE GLUCONATE [Suspect]
     Active Substance: CHLORHEXIDINE GLUCONATE
     Indication: Foetal exposure during pregnancy
     Route: 065
  8. CHOLECALCIFEROL [Suspect]
     Active Substance: CHOLECALCIFEROL
     Indication: Foetal exposure during pregnancy
     Route: 065
  9. CIMZIA [Suspect]
     Active Substance: CERTOLIZUMAB PEGOL
     Indication: Foetal exposure during pregnancy
     Route: 065
  10. CORTISONE ACETATE [Suspect]
     Active Substance: CORTISONE ACETATE
     Indication: Foetal exposure during pregnancy
     Route: 065
  11. DESOXIMETASONE [Suspect]
     Active Substance: DESOXIMETASONE
     Indication: Foetal exposure during pregnancy
     Route: 065
  12. DOMPERIDONE MALEATE [Suspect]
     Active Substance: DOMPERIDONE MALEATE
     Indication: Foetal exposure during pregnancy
     Route: 065
  13. ERGOCALCIFEROL [Suspect]
     Active Substance: ERGOCALCIFEROL
     Indication: Foetal exposure during pregnancy
     Route: 065
  14. FLUMETHASONE [Suspect]
     Active Substance: FLUMETHASONE
     Indication: Foetal exposure during pregnancy
     Route: 065
  15. FLUMETHASONE PIVALATE [Suspect]
     Active Substance: FLUMETHASONE PIVALATE
     Indication: Foetal exposure during pregnancy
     Route: 065
  16. FOLIC ACID [Suspect]
     Active Substance: FOLIC ACID
     Indication: Foetal exposure during pregnancy
     Route: 065
  17. FOSAMAX [Suspect]
     Active Substance: ALENDRONATE SODIUM
     Indication: Foetal exposure during pregnancy
     Route: 065
  18. HAIR KERATIN AMINO ACIDS GOLD COMPLEX [Suspect]
     Active Substance: HAIR KERATIN AMINO ACIDS GOLD COMPLEX
     Indication: Foetal exposure during pregnancy
     Route: 065
  19. GOLD SODIUM THIOMALATE [Suspect]
     Active Substance: GOLD SODIUM THIOMALATE
     Indication: Foetal exposure during pregnancy
     Route: 065
  20. HUMIRA [Suspect]
     Active Substance: ADALIMUMAB
     Indication: Foetal exposure during pregnancy
     Route: 065
  21. HYDROCORTISONE [Suspect]
     Active Substance: HYDROCORTISONE
     Indication: Foetal exposure during pregnancy
     Route: 065
  22. HYDROCORTISONE PROBUTATE [Suspect]
     Active Substance: HYDROCORTISONE PROBUTATE
     Indication: Foetal exposure during pregnancy
     Route: 065
  23. HYDROXYCHLOROQUINE [Suspect]
     Active Substance: HYDROXYCHLOROQUINE
     Indication: Foetal exposure during pregnancy
     Route: 065
  24. HYDROXYCHLOROQUINE SULFATE [Suspect]
     Active Substance: HYDROXYCHLOROQUINE SULFATE
     Indication: Foetal exposure during pregnancy
     Route: 065
  25. ISOPROPYL ALCOHOL [Suspect]
     Active Substance: ISOPROPYL ALCOHOL
     Indication: Foetal exposure during pregnancy
     Route: 065
  26. TRUXIMA [Suspect]
     Active Substance: RITUXIMAB-ABBS
     Indication: Foetal exposure during pregnancy
     Route: 064
  27. TRUXIMA [Suspect]
     Active Substance: RITUXIMAB-ABBS
     Indication: Foetal exposure during pregnancy
  28. TRUXIMA [Suspect]
     Active Substance: RITUXIMAB-ABBS
     Indication: Foetal exposure during pregnancy
  29. TRUXIMA [Suspect]
     Active Substance: RITUXIMAB-ABBS
     Indication: Foetal exposure during pregnancy
  30. TOPIRAMATE [Suspect]
     Active Substance: TOPIRAMATE
     Indication: Foetal exposure during pregnancy
     Route: 064
  31. RAMIPRIL [Suspect]
     Active Substance: RAMIPRIL
     Indication: Foetal exposure during pregnancy
     Route: 064
  32. CETIRIZINE HYDROCHLORIDE\PSEUDOEPHEDRINE HYDROCHLORIDE [Suspect]
     Active Substance: CETIRIZINE HYDROCHLORIDE\PSEUDOEPHEDRINE HYDROCHLORIDE
     Indication: Foetal exposure during pregnancy
     Route: 064
  33. SIMPONI [Suspect]
     Active Substance: GOLIMUMAB
     Indication: Foetal exposure during pregnancy
     Route: 064
  34. ASCORBIC ACID\VITAMINS [Suspect]
     Active Substance: ASCORBIC ACID\VITAMINS
     Indication: Foetal exposure during pregnancy
     Route: 064
  35. ZINC [Suspect]
     Active Substance: ZINC
     Indication: Foetal exposure during pregnancy
     Route: 064
  36. STELARA [Suspect]
     Active Substance: USTEKINUMAB
     Indication: Foetal exposure during pregnancy
     Route: 064
  37. COSENTYX [Suspect]
     Active Substance: SECUKINUMAB
     Indication: Foetal exposure during pregnancy
  38. ADALIMUMAB [Suspect]
     Active Substance: ADALIMUMAB
     Indication: Foetal exposure during pregnancy
     Route: 064
  39. LEFLUNOMIDE [Suspect]
     Active Substance: LEFLUNOMIDE
     Indication: Foetal exposure during pregnancy
     Route: 064
  40. LAMICTAL [Suspect]
     Active Substance: LAMOTRIGINE
     Indication: Foetal exposure during pregnancy
     Route: 064
  41. NAPROXEN SODIUM [Suspect]
     Active Substance: NAPROXEN SODIUM
     Indication: Foetal exposure during pregnancy
     Route: 064

REACTIONS (2)
  - Congenital anomaly [Unknown]
  - Foetal exposure during pregnancy [Unknown]
